FAERS Safety Report 21926763 (Version 1)
Quarter: 2023Q1

REPORT INFORMATION
  Report Type: Spontaneous
  Country: US (occurrence: None)
  Receive Date: 20230128
  Receipt Date: 20230128
  Transmission Date: 20230418
  Serious: Yes (Hospitalization)
  Sender: FDA-Public Use
  Company Number: None

PATIENT
  Sex: Female
  Weight: 78.93 kg

DRUGS (16)
  1. INLYTA [Suspect]
     Active Substance: AXITINIB
     Indication: Renal cancer
     Dosage: 3MG TWICE DAILY ORAL?
     Route: 048
  2. ALLEGRA-D [Concomitant]
     Active Substance: FEXOFENADINE HYDROCHLORIDE\PSEUDOEPHEDRINE HYDROCHLORIDE
  3. CARAFATE [Concomitant]
     Active Substance: SUCRALFATE
  4. CLONAZEPAM [Concomitant]
     Active Substance: CLONAZEPAM
  5. CRESTOR [Concomitant]
     Active Substance: ROSUVASTATIN CALCIUM
  6. FLONASE [Concomitant]
     Active Substance: FLUTICASONE PROPIONATE
  7. NITROSTAT [Concomitant]
     Active Substance: NITROGLYCERIN
  8. NORVASC [Concomitant]
     Active Substance: AMLODIPINE BESYLATE
  9. PAXIL [Concomitant]
     Active Substance: PAROXETINE HYDROCHLORIDE
  10. PROMETHAZINE [Concomitant]
     Active Substance: PROMETHAZINE HYDROCHLORIDE
  11. PROMETHAZINE [Concomitant]
     Active Substance: PROMETHAZINE HYDROCHLORIDE
  12. RANEXA [Concomitant]
     Active Substance: RANOLAZINE
  13. TRESIBA [Concomitant]
     Active Substance: INSULIN DEGLUDEC
  14. TRICOR [Concomitant]
     Active Substance: FENOFIBRATE
  15. VELTASSA [Concomitant]
     Active Substance: PATIROMER
  16. ZOFRAN [Concomitant]
     Active Substance: ONDANSETRON HYDROCHLORIDE

REACTIONS (1)
  - Unevaluable event [None]
